FAERS Safety Report 9257991 (Version 3)
Quarter: 2013Q2

REPORT INFORMATION
  Report Type: Spontaneous
  Country: BR (occurrence: BR)
  Receive Date: 20130426
  Receipt Date: 20130517
  Transmission Date: 20140414
  Serious: Yes (Other)
  Sender: FDA-Public Use
  Company Number: BR-GALDERMA-BR13001245

PATIENT
  Age: 28 Year
  Sex: Female

DRUGS (6)
  1. DIFFERIN [Suspect]
     Indication: ACNE
     Dosage: 0.3%
     Route: 061
     Dates: start: 20121213
  2. DIFFERIN [Suspect]
     Dosage: 0.3%
     Route: 061
     Dates: start: 20130301
  3. DERMOTIVIN ORIGINAL BAR SOAP [Concomitant]
     Indication: THERAPEUTIC SKIN CARE TOPICAL
     Route: 061
     Dates: start: 20121213
  4. ANTHELIOS AC FPS30 [Concomitant]
     Indication: PROPHYLAXIS
     Route: 061
     Dates: start: 20121213
  5. CAPTOPRIL [Concomitant]
     Indication: HYPERTENSION
  6. METHYLDOPA [Concomitant]
     Indication: HYPERTENSION

REACTIONS (7)
  - Abortion spontaneous [Recovered/Resolved]
  - Skin hyperpigmentation [Recovering/Resolving]
  - Erythema [Recovered/Resolved]
  - Skin exfoliation [Recovered/Resolved]
  - Pruritus [Recovered/Resolved]
  - Skin burning sensation [Recovered/Resolved]
  - Dry skin [Recovered/Resolved]
